FAERS Safety Report 7858844-X (Version None)
Quarter: 2011Q4

REPORT INFORMATION
  Report Type: 
  Country: None (occurrence: None)
  Receive Date: 20111026
  Receipt Date: 20111026
  Transmission Date: 20120403
  Serious: Yes (Hospitalization)
  Sender: FDA-Public Use
  Company Number: None

PATIENT
  Sex: Female
  Weight: 58.4 kg

DRUGS (12)
  1. VINCRISTINE SULFATE [Suspect]
     Dosage: 4 MG
  2. CYCLOPHOSPHAMIDE [Suspect]
     Dosage: 1670 MG
  3. CYTARABINE [Suspect]
     Dosage: 1008 MG
  4. THIOGUANINE [Suspect]
     Dosage: 1400 MG
  5. METHOTREXATE [Suspect]
     Dosage: 45 MG
  6. ZOFRAN [Concomitant]
  7. DEXAMETHASONE [Suspect]
     Dosage: 224 MG
  8. SCOPOLAMINE [Concomitant]
  9. PEG-L-ASPARAGINASE (K-H) [Suspect]
     Dosage: 8350 MG
  10. ATIVAN [Concomitant]
  11. DOXORUBICIN HCL [Suspect]
     Dosage: 125.25 MG
  12. BENADRY [Concomitant]

REACTIONS (4)
  - BLOOD PRESSURE DIASTOLIC INCREASED [None]
  - APHASIA [None]
  - BLOOD PRESSURE [None]
  - DYSARTHRIA [None]
